FAERS Safety Report 6611451-9 (Version None)
Quarter: 2010Q1

REPORT INFORMATION
  Report Type: 
  Country: None (occurrence: None)
  Receive Date: 20100303
  Receipt Date: 20100223
  Transmission Date: 20100710
  Serious: Yes (Hospitalization)
  Sender: FDA-Public Use
  Company Number: US-SANOFI-AVENTIS-2010SA009299

PATIENT
  Age: 69 Year
  Sex: Female

DRUGS (8)
  1. MULTAQ [Suspect]
     Route: 048
     Dates: start: 20100131, end: 20100204
  2. ATORVASTATIN CALCIUM [Concomitant]
     Route: 065
  3. CEFTRIAXONE (ROCEPHIN) [Concomitant]
  4. DILTIAZEM HCL [Concomitant]
     Route: 065
  5. FEXOFENADINE [Concomitant]
  6. FLAGYL [Concomitant]
  7. LASIX [Concomitant]
  8. PREVACID [Concomitant]

REACTIONS (2)
  - CARDIAC ARREST [None]
  - VENTRICULAR TACHYCARDIA [None]
